FAERS Safety Report 4914403-X (Version None)
Quarter: 2006Q1

REPORT INFORMATION
  Report Type: 
  Country: None (occurrence: None)
  Receive Date: 20060213
  Receipt Date: 20060131
  Transmission Date: 20060701
  Serious: Yes (Hospitalization)
  Sender: FDA-Public Use
  Company Number: 2005BI016083

PATIENT
  Age: 56 Year
  Sex: Female
  Weight: 65.7716 kg

DRUGS (4)
  1. AVONEX [Suspect]
     Indication: MULTIPLE SCLEROSIS
     Dosage: 30 UG; QW; IM
     Route: 030
     Dates: start: 19980101
  2. AVONEX [Suspect]
     Indication: MULTIPLE SCLEROSIS
     Dosage: 30 UG; QW; IM
     Route: 030
  3. NAPROXEN [Concomitant]
  4. ZOCOR [Concomitant]

REACTIONS (6)
  - FALL [None]
  - HYPERTENSION [None]
  - INCONTINENCE [None]
  - MULTIPLE SCLEROSIS RELAPSE [None]
  - OSTEOPENIA [None]
  - URINARY TRACT INFECTION [None]
